FAERS Safety Report 18781425 (Version 1)
Quarter: 2021Q1

REPORT INFORMATION
  Report Type: Spontaneous
  Country: US (occurrence: US)
  Receive Date: 20210125
  Receipt Date: 20210125
  Transmission Date: 20210419
  Serious: Yes (Hospitalization)
  Sender: FDA-Public Use
  Company Number: None

PATIENT
  Age: 64 Year
  Sex: Female
  Weight: 73 kg

DRUGS (2)
  1. IMDEVIMAB. [Suspect]
     Active Substance: IMDEVIMAB
     Indication: COVID-19
     Dosage: ?          OTHER FREQUENCY:ONE?TIME;?
     Route: 042
     Dates: start: 20210123, end: 20210123
  2. CASIRIVIMAB. [Suspect]
     Active Substance: CASIRIVIMAB
     Indication: COVID-19
     Dosage: ?          OTHER FREQUENCY:ONE?TIME;?
     Route: 042
     Dates: start: 20210123, end: 20210123

REACTIONS (3)
  - Nausea [None]
  - Flushing [None]
  - Loss of consciousness [None]

NARRATIVE: CASE EVENT DATE: 20210123
